FAERS Safety Report 11490050 (Version 1)
Quarter: 2015Q3

REPORT INFORMATION
  Report Type: Report from Study
  Country: BR (occurrence: BR)
  Receive Date: 20150910
  Receipt Date: 20150910
  Transmission Date: 20151125
  Serious: Yes (Other)
  Sender: FDA-Public Use
  Company Number: PHHY2015BR108305

PATIENT
  Sex: Female
  Weight: 57 kg

DRUGS (3)
  1. TRILEPTAL [Suspect]
     Active Substance: OXCARBAZEPINE
     Dosage: 1 OR 2 ML, TRILEPTAL LIQUID
     Route: 065
  2. TRILEPTAL [Suspect]
     Active Substance: OXCARBAZEPINE
     Dosage: 2 DF (600 MG), UNK
     Route: 065
     Dates: end: 20110902
  3. TRILEPTAL [Suspect]
     Active Substance: OXCARBAZEPINE
     Indication: EPILEPSY
     Dosage: 300 MG, UNK
     Route: 065
     Dates: start: 2006

REACTIONS (1)
  - Petit mal epilepsy [Unknown]
